FAERS Safety Report 8269398-0 (Version None)
Quarter: 2012Q2

REPORT INFORMATION
  Report Type: 
  Country: None (occurrence: None)
  Receive Date: 20120409
  Receipt Date: 20120113
  Transmission Date: 20120825
  Serious: No
  Sender: FDA-Public Use
  Company Number: US-ASTRAZENECA-2012SE02643

PATIENT
  Age: 81 Year
  Sex: Female
  Weight: 71.2 kg

DRUGS (7)
  1. METOPROLOL TARTRATE [Concomitant]
     Indication: HEART RATE IRREGULAR
     Route: 065
  2. FAMOTIDINE [Concomitant]
     Indication: HYPERCHLORHYDRIA
  3. ASPIRIN [Concomitant]
  4. ATORVASTATIN [Concomitant]
  5. HYDROCHLOROTHIAZIDE [Concomitant]
  6. BRILINTA [Suspect]
     Route: 048
  7. ADVAIR DISKUS 100/50 [Concomitant]

REACTIONS (3)
  - URTICARIA [None]
  - HYPERSENSITIVITY [None]
  - DYSPNOEA [None]
